FAERS Safety Report 10576611 (Version 1)
Quarter: 2014Q4

REPORT INFORMATION
  Report Type: Spontaneous
  Country: PL (occurrence: PL)
  Receive Date: 20141111
  Receipt Date: 20141111
  Transmission Date: 20150529
  Serious: Yes (Other)
  Sender: FDA-Public Use
  Company Number: PL-ACTAVIS-2014-23823

PATIENT
  Sex: Female

DRUGS (1)
  1. CAMITOTIC [Suspect]
     Active Substance: DOCETAXEL
     Indication: PRODUCT USED FOR UNKNOWN INDICATION
     Dosage: 165.62 MG, TOTAL. 1 DOSE
     Route: 042
     Dates: start: 20140321, end: 20140321

REACTIONS (1)
  - Skin reaction [Unknown]
